FAERS Safety Report 5425505-6 (Version None)
Quarter: 2007Q3

REPORT INFORMATION
  Report Type: 
  Country: None (occurrence: None)
  Receive Date: 20070731
  Receipt Date: 20070405
  Transmission Date: 20080115
  Serious: No
  Sender: FDA-Public Use
  Company Number: US200704001651

PATIENT
  Age: 62 Year
  Sex: Female

DRUGS (9)
  1. BYETTA [Suspect]
     Indication: TYPE 2 DIABETES MELLITUS
     Dosage: 10 UG, 2/D SUBCUTANEOUS; 10 UG, DAILY (1/D) SUBCUTANEOUS
     Route: 058
     Dates: start: 20060101, end: 20070101
  2. BYETTA [Suspect]
     Indication: TYPE 2 DIABETES MELLITUS
     Dosage: 10 UG, 2/D SUBCUTANEOUS; 10 UG, DAILY (1/D) SUBCUTANEOUS
     Route: 058
     Dates: start: 20070101, end: 20070201
  3. EXENATIDE PEN (EXENATIDE PEN) [Concomitant]
  4. GABAPENTIN [Concomitant]
  5. GLIPIZIDE [Concomitant]
  6. LESCOL [Concomitant]
  7. ALBUTEROL [Concomitant]
  8. SINGULAIR [Concomitant]
  9. METFORMIN HCL [Concomitant]

REACTIONS (6)
  - ARTHRALGIA [None]
  - COUGH [None]
  - GROIN PAIN [None]
  - HYPERTENSION [None]
  - HYPOAESTHESIA [None]
  - VAGINAL DISCHARGE [None]
